FAERS Safety Report 14706367 (Version 4)
Quarter: 2018Q3

REPORT INFORMATION
  Report Type: Spontaneous
  Country: CA (occurrence: CA)
  Receive Date: 20180402
  Receipt Date: 20180703
  Transmission Date: 20181010
  Serious: Yes (Hospitalization, Other)
  Sender: FDA-Public Use
  Company Number: CA-CELLTRION INC.-2018CA018962

PATIENT

DRUGS (4)
  1. INFLECTRA [Suspect]
     Active Substance: INFLIXIMAB-DYYB
     Dosage: 600 MG, CYCLIC, EVERY 2,6 WEEKS, THEN EVERY 8 WEEKS
     Route: 042
     Dates: start: 20180323
  2. MEROPENEM. [Concomitant]
     Active Substance: MEROPENEM
     Indication: ANTIBIOTIC THERAPY
     Dosage: UNK
     Route: 065
  3. INFLECTRA [Suspect]
     Active Substance: INFLIXIMAB-DYYB
     Indication: CROHN^S DISEASE
     Dosage: 600 MG, CYCLIC (EVERY 2, 6 WEEKS, THEN EVERY 8 WEEKS)
     Route: 042
     Dates: start: 20180309
  4. LINEZOLID. [Concomitant]
     Active Substance: LINEZOLID
     Indication: ANTIBIOTIC THERAPY

REACTIONS (4)
  - Condition aggravated [Not Recovered/Not Resolved]
  - Product use issue [Unknown]
  - Intestinal obstruction [Not Recovered/Not Resolved]
  - Neck pain [Unknown]

NARRATIVE: CASE EVENT DATE: 20180309
